FAERS Safety Report 4713567-0 (Version None)
Quarter: 2005Q3

REPORT INFORMATION
  Report Type: 
  Country: None (occurrence: None)
  Receive Date: 20050712
  Receipt Date: 20050628
  Transmission Date: 20060218
  Serious: Yes (Death)
  Sender: FDA-Public Use
  Company Number: 2005S1005495

PATIENT
  Age: 55 Year
  Sex: Male

DRUGS (10)
  1. FENTANYL [Suspect]
     Indication: CANCER PAIN
     Dosage: 25 MCG/HR;Q3D;TDER
     Dates: start: 20050513, end: 20050516
  2. FENTANYL [Suspect]
     Dosage: 50 MCG/HR;Q3D;TDER
     Dates: start: 20050513, end: 20050521
  3. MORPHINE SULFATE [Concomitant]
  4. LORAZEPAM [Concomitant]
  5. PROCHLORPERAZINE [Concomitant]
  6. EDISYLATE [Concomitant]
  7. DOCUSATE SODIUM/CASANTHRANOL [Concomitant]
  8. FLUCONAZOLE [Concomitant]
  9. LISINOPRIL [Concomitant]
  10. GRADE 1 MOUTH RINSE [Concomitant]

REACTIONS (8)
  - ANALGESIC DRUG LEVEL ABOVE THERAPEUTIC [None]
  - BLOOD PRESSURE DECREASED [None]
  - CARDIAC ARREST [None]
  - CARDIOMEGALY [None]
  - DEHYDRATION [None]
  - LETHARGY [None]
  - LOSS OF CONSCIOUSNESS [None]
  - SOMNOLENCE [None]
